FAERS Safety Report 20942792 (Version 1)
Quarter: 2022Q2

REPORT INFORMATION
  Report Type: Spontaneous
  Country: US (occurrence: US)
  Receive Date: 20220610
  Receipt Date: 20220610
  Transmission Date: 20220720
  Serious: No
  Sender: FDA-Public Use
  Company Number: US-ALLERGAN-2202666US

PATIENT
  Age: 16 Year

DRUGS (1)
  1. VIBERZI [Suspect]
     Active Substance: ELUXADOLINE
     Indication: Irritable bowel syndrome

REACTIONS (1)
  - Off label use [Unknown]
